FAERS Safety Report 7813147-4 (Version None)
Quarter: 2011Q4

REPORT INFORMATION
  Report Type: 
  Country: None (occurrence: None)
  Receive Date: 20111013
  Receipt Date: 20111003
  Transmission Date: 20120403
  Serious: Yes (Other)
  Sender: FDA-Public Use
  Company Number: AR-ROCHE-GNE324389

PATIENT
  Sex: Male

DRUGS (1)
  1. LUCENTIS [Suspect]
     Indication: MACULOPATHY
     Dosage: 1 DF, 1/MONTH
     Route: 050
     Dates: start: 20110520

REACTIONS (6)
  - EYELID OEDEMA [None]
  - EYE IRRITATION [None]
  - ASTHENOPIA [None]
  - RETINAL CYST [None]
  - MACULAR SCAR [None]
  - EYELID DISORDER [None]
